FAERS Safety Report 6169226-3 (Version None)
Quarter: 2009Q2

REPORT INFORMATION
  Report Type: 
  Country: None (occurrence: None)
  Receive Date: 20090424
  Receipt Date: 20090414
  Transmission Date: 20091009
  Serious: Yes (Other)
  Sender: FDA-Public Use
  Company Number: 09-006

PATIENT
  Age: 92 Year
  Sex: Male

DRUGS (5)
  1. DORZOLAMIDE HCL AND TIMOLOL MALEATE [Suspect]
     Indication: GLAUCOMA
     Dosage: ONE DROP OU BID
     Dates: start: 20090315
  2. LISINOPRIL [Concomitant]
  3. FELODIPINE [Concomitant]
  4. PREDNISONE [Concomitant]
  5. ACYCLOVIR [Concomitant]

REACTIONS (2)
  - BLINDNESS [None]
  - PRODUCT SUBSTITUTION ISSUE [None]
